FAERS Safety Report 23449350 (Version 1)
Quarter: 2024Q1

REPORT INFORMATION
  Report Type: Other
  Country: EG (occurrence: EG)
  Receive Date: 20240129
  Receipt Date: 20240129
  Transmission Date: 20240409
  Serious: Yes (Other)
  Sender: FDA-Public Use
  Company Number: EG-BIOCON BIOLOGICS LIMITED-BBL2024000371

PATIENT
  Age: 54 Year
  Sex: Female
  Weight: 137 kg

DRUGS (4)
  1. OGIVRI [Suspect]
     Active Substance: TRASTUZUMAB-DKST
     Indication: Breast cancer
     Dosage: 880 MG, QD (INFUSION)
     Route: 042
     Dates: start: 20231205
  2. PACLITAXEL [Suspect]
     Active Substance: PACLITAXEL
     Indication: Breast cancer
     Dosage: 184 MG,(DAY 1,8,15)
     Route: 042
     Dates: start: 20231205
  3. CARBOPLATIN [Suspect]
     Active Substance: CARBOPLATIN
     Indication: Breast cancer
     Dosage: 750 MG, (DAY 1)
     Route: 042
     Dates: start: 20231205
  4. SUNNYSHIFT [Concomitant]
     Indication: Breast cancer
     Dosage: 4 MG, QW
     Route: 042
     Dates: start: 20231205

REACTIONS (3)
  - Neutropenia [Unknown]
  - Anaemia [Unknown]
  - White blood cell count decreased [Unknown]

NARRATIVE: CASE EVENT DATE: 20231212
